FAERS Safety Report 4447737-6 (Version None)
Quarter: 2004Q3

REPORT INFORMATION
  Report Type: 
  Country: None (occurrence: None)
  Receive Date: 20040812
  Receipt Date: 20040521
  Transmission Date: 20050211
  Serious: No
  Sender: FDA-Public Use
  Company Number: USA040568234

PATIENT
  Sex: Male

DRUGS (6)
  1. CIALIS [Suspect]
     Dosage: 20 MG
     Dates: start: 20040521
  2. PAXIL [Concomitant]
  3. XANAX [Concomitant]
  4. QUETIAPINE FUMARATE [Concomitant]
  5. PLEXERIL (CYCLOBENZAPRINE HYDROCHLORIDE) [Concomitant]
  6. VICODIN [Concomitant]

REACTIONS (1)
  - DRUG INEFFECTIVE [None]
